FAERS Safety Report 4418115-0 (Version None)
Quarter: 2004Q3

REPORT INFORMATION
  Report Type: 
  Country: None (occurrence: None)
  Receive Date: 20040809
  Receipt Date: 20040728
  Transmission Date: 20050211
  Serious: Yes (Hospitalization)
  Sender: FDA-Public Use
  Company Number: GB-JNJFOC-20040707996

PATIENT
  Age: 62 Year
  Sex: Male

DRUGS (4)
  1. DAKTARIN [Suspect]
     Indication: GLOSSODYNIA
     Route: 061
  2. WARFARIN SODIUM [Suspect]
     Route: 049
  3. WARFARIN SODIUM [Suspect]
     Route: 049
  4. WARFARIN SODIUM [Suspect]
     Indication: THROMBOSIS
     Route: 049

REACTIONS (3)
  - DRUG INTERACTION [None]
  - HAEMATURIA [None]
  - INTERNATIONAL NORMALISED RATIO INCREASED [None]
